FAERS Safety Report 13064807 (Version 3)
Quarter: 2017Q1

REPORT INFORMATION
  Report Type: Spontaneous
  Country: CH (occurrence: CH)
  Receive Date: 20161227
  Receipt Date: 20170103
  Transmission Date: 20170428
  Serious: Yes (Hospitalization, Other)
  Sender: FDA-Public Use
  Company Number: CH-JNJFOC-20161215358

PATIENT
  Age: 0 Year
  Sex: Female
  Weight: 1.84 kg

DRUGS (23)
  1. REMICADE [Suspect]
     Active Substance: INFLIXIMAB
     Indication: FAMILIAL MEDITERRANEAN FEVER
     Route: 064
     Dates: start: 20160627, end: 201606
  2. REMICADE [Suspect]
     Active Substance: INFLIXIMAB
     Indication: FAMILIAL MEDITERRANEAN FEVER
     Route: 064
     Dates: start: 2013
  3. REMICADE [Suspect]
     Active Substance: INFLIXIMAB
     Indication: CROHN^S DISEASE
     Route: 064
     Dates: start: 20160125
  4. REMICADE [Suspect]
     Active Substance: INFLIXIMAB
     Indication: FAMILIAL MEDITERRANEAN FEVER
     Route: 064
     Dates: start: 20160306
  5. REMICADE [Suspect]
     Active Substance: INFLIXIMAB
     Indication: CROHN^S DISEASE
     Route: 064
     Dates: start: 2013
  6. REMICADE [Suspect]
     Active Substance: INFLIXIMAB
     Indication: CROHN^S DISEASE
     Route: 064
     Dates: start: 20160627, end: 201606
  7. MORPHINE [Suspect]
     Active Substance: MORPHINE
     Indication: ANALGESIC THERAPY
     Dosage: ON AVERAGE 40-50 MG IV OR SC (MAX 70 MG) EVERY 3 TO 5 DAYS SINCE THE BEGINNING OF THE PREGNANCY
     Route: 064
     Dates: start: 2016, end: 201607
  8. COLCHICINE. [Suspect]
     Active Substance: COLCHICINE
     Indication: FAMILIAL MEDITERRANEAN FEVER
     Route: 064
     Dates: start: 20160815
  9. BETAMETHASONE. [Concomitant]
     Active Substance: BETAMETHASONE
     Indication: NEONATAL RESPIRATORY DISTRESS SYNDROME PROPHYLAXIS
     Route: 064
     Dates: start: 20160714, end: 20160715
  10. REMICADE [Suspect]
     Active Substance: INFLIXIMAB
     Indication: CROHN^S DISEASE
     Route: 064
  11. FLUOMIZIN [Concomitant]
     Active Substance: DEQUALINIUM CHLORIDE
     Indication: BACTERIAL VAGINOSIS
     Route: 064
     Dates: start: 20160406, end: 20160412
  12. FOLIC ACID. [Concomitant]
     Active Substance: FOLIC ACID
     Route: 064
     Dates: start: 2016, end: 2016
  13. REMICADE [Suspect]
     Active Substance: INFLIXIMAB
     Indication: CROHN^S DISEASE
     Route: 064
     Dates: start: 20160306
  14. COLCHICINE. [Suspect]
     Active Substance: COLCHICINE
     Indication: FAMILIAL MEDITERRANEAN FEVER
     Route: 064
     Dates: start: 2016
  15. CO-DAFALGAN [Suspect]
     Active Substance: ACETAMINOPHEN\CODEINE PHOSPHATE
     Indication: ANALGESIC THERAPY
     Route: 064
     Dates: start: 2015
  16. BUDESONIDE. [Suspect]
     Active Substance: BUDESONIDE
     Indication: CROHN^S DISEASE
     Dosage: ALSO REPORTED AS 3 MG.
     Route: 064
     Dates: start: 20160801, end: 201608
  17. REMICADE [Suspect]
     Active Substance: INFLIXIMAB
     Indication: FAMILIAL MEDITERRANEAN FEVER
     Route: 064
  18. CLONIDINE. [Suspect]
     Active Substance: CLONIDINE
     Indication: ANALGESIC THERAPY
     Route: 064
     Dates: start: 20160716
  19. CLONIDINE. [Suspect]
     Active Substance: CLONIDINE
     Indication: ANALGESIC THERAPY
     Dosage: ALSO REPORTED AS 4 MG, 75 MCG BID??TO REDUCE THE NEED FOR OPIATES
     Route: 064
     Dates: start: 20160716, end: 20160719
  20. MORPHINE [Suspect]
     Active Substance: MORPHINE
     Indication: ANALGESIC THERAPY
     Route: 064
     Dates: start: 2016, end: 2016
  21. REMICADE [Suspect]
     Active Substance: INFLIXIMAB
     Indication: FAMILIAL MEDITERRANEAN FEVER
     Route: 064
     Dates: start: 20160125
  22. COLCHICINE. [Suspect]
     Active Substance: COLCHICINE
     Indication: FAMILIAL MEDITERRANEAN FEVER
     Route: 064
     Dates: start: 2015
  23. UTROGESTAN [Concomitant]
     Active Substance: PROGESTERONE
     Indication: PROPHYLAXIS OF ABORTION
     Route: 064
     Dates: start: 201601, end: 2016

REACTIONS (5)
  - Neonatal respiratory distress syndrome [Recovered/Resolved]
  - Premature baby [Recovered/Resolved]
  - Foetal growth restriction [Unknown]
  - Pneumothorax [Recovered/Resolved]
  - Foetal exposure during pregnancy [Recovered/Resolved]

NARRATIVE: CASE EVENT DATE: 2016
